FAERS Safety Report 18937157 (Version 1)
Quarter: 2021Q1

REPORT INFORMATION
  Report Type: Spontaneous
  Country: US (occurrence: US)
  Receive Date: 20210225
  Receipt Date: 20210225
  Transmission Date: 20210420
  Serious: No
  Sender: FDA-Public Use
  Company Number: US-AUROBINDO-AUR-APL-2020-060132

PATIENT
  Age: 71 Year
  Sex: Male

DRUGS (2)
  1. TADALAFIL TABLETS USP 20 MG [Suspect]
     Active Substance: TADALAFIL
     Indication: PRODUCT USED FOR UNKNOWN INDICATION
     Dosage: 2 DOSAGE FORM
     Route: 065
  2. TADALAFIL TABLETS USP 20 MG [Suspect]
     Active Substance: TADALAFIL
     Dosage: 1 DOSAGE FORM (FROM DIFFERENT LOT AND IT WORKED AS IT SHOULD)

REACTIONS (1)
  - Drug ineffective [Unknown]
